FAERS Safety Report 14806372 (Version 2)
Quarter: 2018Q2

REPORT INFORMATION
  Report Type: Report from Study
  Country: US (occurrence: US)
  Receive Date: 20180425
  Receipt Date: 20180507
  Transmission Date: 20180711
  Serious: Yes (Hospitalization)
  Sender: FDA-Public Use
  Company Number: US-LUNDBECK-DKLU2047733

PATIENT
  Age: 13 Month
  Sex: Male
  Weight: 8 kg

DRUGS (2)
  1. SABRIL [Suspect]
     Active Substance: VIGABATRIN
     Indication: TUBEROUS SCLEROSIS COMPLEX
     Route: 048
     Dates: start: 20170628, end: 20171217
  2. SABRIL [Suspect]
     Active Substance: VIGABATRIN
     Indication: SEIZURE

REACTIONS (4)
  - Seizure [Unknown]
  - Respiratory symptom [Unknown]
  - Pyrexia [Unknown]
  - Ear infection [Unknown]

NARRATIVE: CASE EVENT DATE: 2017
